FAERS Safety Report 16221886 (Version 1)
Quarter: 2019Q2

REPORT INFORMATION
  Report Type: Spontaneous
  Country: US (occurrence: US)
  Receive Date: 20190422
  Receipt Date: 20190422
  Transmission Date: 20190711
  Serious: Yes (Other)
  Sender: FDA-Public Use
  Company Number: US-SA-2019SA109639

PATIENT
  Age: 66 Year
  Sex: Female

DRUGS (12)
  1. CALCIUM [Concomitant]
     Active Substance: CALCIUM
  2. CRESTOR [Concomitant]
     Active Substance: ROSUVASTATIN CALCIUM
  3. DITROPAN [Concomitant]
     Active Substance: OXYBUTYNIN CHLORIDE
  4. MYRBETRIQ [Concomitant]
     Active Substance: MIRABEGRON
  5. VESICARE [Concomitant]
     Active Substance: SOLIFENACIN SUCCINATE
  6. AUBAGIO [Suspect]
     Active Substance: TERIFLUNOMIDE
     Indication: MULTIPLE SCLEROSIS
     Dosage: 14 MG, QD
     Route: 048
     Dates: start: 201412
  7. CANASA [Concomitant]
     Active Substance: MESALAMINE
  8. FISH OIL [Concomitant]
     Active Substance: FISH OIL
  9. ZETIA [Concomitant]
     Active Substance: EZETIMIBE
  10. NITROFURANTOIN. [Concomitant]
     Active Substance: NITROFURANTOIN
  11. COLACE [Concomitant]
     Active Substance: DOCUSATE SODIUM
  12. DELZICOL [Concomitant]
     Active Substance: MESALAMINE

REACTIONS (1)
  - Aortic stenosis [Unknown]
